FAERS Safety Report 6145478-0 (Version None)
Quarter: 2009Q2

REPORT INFORMATION
  Report Type: 
  Country: None (occurrence: None)
  Receive Date: 20090406
  Receipt Date: 20090406
  Transmission Date: 20091009
  Serious: Yes (Other)
  Sender: FDA-Public Use
  Company Number: US-PFIZER INC-2008159572

PATIENT
  Sex: Female
  Weight: 86.621 kg

DRUGS (7)
  1. LYRICA [Suspect]
     Indication: NEURALGIA
     Dates: start: 20040101
  2. ESTROGEN NOS [Concomitant]
  3. CALCIFEROL [Concomitant]
  4. MAGNESIUM SULFATE [Concomitant]
  5. VITAMIN D [Concomitant]
  6. VITAMIN B COMPLEX CAP [Concomitant]
  7. LASIX [Concomitant]

REACTIONS (6)
  - DEAFNESS UNILATERAL [None]
  - FATIGUE [None]
  - HEARING IMPAIRED [None]
  - TINNITUS [None]
  - VISION BLURRED [None]
  - WEIGHT INCREASED [None]
